FAERS Safety Report 25103574 (Version 1)
Quarter: 2025Q1

REPORT INFORMATION
  Report Type: Spontaneous
  Country: JP (occurrence: JP)
  Receive Date: 20250321
  Receipt Date: 20250321
  Transmission Date: 20250409
  Serious: Yes (Life-Threatening, Other)
  Sender: SANOFI AVENTIS
  Company Number: JP-MEIJISEIKA-202402157_P_1

PATIENT
  Age: 63 Year
  Sex: Male

DRUGS (1)
  1. REZUROCK [Suspect]
     Active Substance: BELUMOSUDIL
     Dosage: 200 MG, QD
     Route: 048

REACTIONS (3)
  - Cholangiocarcinoma [Not Recovered/Not Resolved]
  - White blood cell count abnormal [Unknown]
  - Neutrophil count abnormal [Unknown]
